FAERS Safety Report 4937714-0 (Version None)
Quarter: 2006Q1

REPORT INFORMATION
  Report Type: 
  Country: None (occurrence: None)
  Receive Date: 20060309
  Receipt Date: 20051122
  Transmission Date: 20060701
  Serious: Yes (Death, Hospitalization, Other)
  Sender: FDA-Public Use
  Company Number: US-MERCK-0511USA03842

PATIENT
  Age: 64 Year
  Sex: Male
  Weight: 68 kg

DRUGS (4)
  1. VIOXX [Suspect]
     Indication: ARTHRITIS
     Route: 048
     Dates: start: 20010711
  2. PREDNISONE [Concomitant]
     Route: 065
  3. DIGOXIN [Suspect]
     Route: 065
     Dates: end: 20020301
  4. TYLENOL (CAPLET) [Concomitant]
     Route: 065

REACTIONS (23)
  - ACUTE MYOCARDIAL INFARCTION [None]
  - ANGINA PECTORIS [None]
  - ANGINA UNSTABLE [None]
  - BRADYCARDIA [None]
  - CALCULUS URETERIC [None]
  - CARDIAC FAILURE CONGESTIVE [None]
  - CORONARY ARTERY DISEASE [None]
  - CORONARY ARTERY RESTENOSIS [None]
  - HEPATITIS C [None]
  - HYDRONEPHROSIS [None]
  - HYPOTENSION [None]
  - HYPOVOLAEMIA [None]
  - ISCHAEMIC CARDIOMYOPATHY [None]
  - MYOCARDIAL INFARCTION [None]
  - NEPHROLITHIASIS [None]
  - PEPTIC ULCER HAEMORRHAGE [None]
  - RENAL FAILURE ACUTE [None]
  - SEPSIS SYNDROME [None]
  - THERAPEUTIC AGENT TOXICITY [None]
  - URETERIC OBSTRUCTION [None]
  - URINARY TRACT INFECTION [None]
  - URINARY TRACT INFECTION FUNGAL [None]
  - VENTRICULAR ARRHYTHMIA [None]
